FAERS Safety Report 15137557 (Version 1)
Quarter: 2018Q3

REPORT INFORMATION
  Report Type: Spontaneous
  Country: HU (occurrence: HU)
  Receive Date: 20180712
  Receipt Date: 20180712
  Transmission Date: 20181010
  Serious: Yes (Other)
  Sender: FDA-Public Use
  Company Number: HU-JNJFOC-20180702171

PATIENT
  Age: 66 Year
  Sex: Male

DRUGS (1)
  1. DARATUMUMAB [Suspect]
     Active Substance: DARATUMUMAB
     Indication: PLASMA CELL MYELOMA
     Dates: start: 201702

REACTIONS (2)
  - Coombs indirect test positive [Unknown]
  - Laboratory test interference [Unknown]

NARRATIVE: CASE EVENT DATE: 201703
